FAERS Safety Report 20887512 (Version 1)
Quarter: 2022Q2

REPORT INFORMATION
  Report Type: Spontaneous
  Country: CN (occurrence: CN)
  Receive Date: 20220528
  Receipt Date: 20220528
  Transmission Date: 20220721
  Serious: Yes (Other)
  Sender: FDA-Public Use
  Company Number: None

PATIENT
  Age: 41 Year
  Sex: Female
  Weight: 59 kg

DRUGS (9)
  1. CYCLOPHOSPHAMIDE [Suspect]
     Active Substance: CYCLOPHOSPHAMIDE
     Indication: Breast cancer female
     Dosage: 1ST CYCLE CYCLOPHOSPHAMIDE DILUTED WITH SODIUM CHLORIDE
     Route: 041
  2. CYCLOPHOSPHAMIDE [Suspect]
     Active Substance: CYCLOPHOSPHAMIDE
     Dosage: 2ND CYCLE CYCLOPHOSPHAMIDE DILUTED WITH SODIUM CHORIDE
     Route: 041
     Dates: start: 20220504, end: 20220504
  3. SODIUM CHLORIDE [Suspect]
     Active Substance: SODIUM CHLORIDE
     Indication: Medication dilution
     Dosage: 2ND CYCLE, CYCLOPHOSPHAMIDE DILUTED WITH SODIUM CHLORIDE
     Route: 041
     Dates: start: 20220504, end: 20220504
  4. SODIUM CHLORIDE [Suspect]
     Active Substance: SODIUM CHLORIDE
     Dosage: 2ND CYCLE, PACLITAXEL (ALBUMIN) FOR SODIUM CHLORIDE
     Route: 041
     Dates: start: 20220504, end: 20220504
  5. SODIUM CHLORIDE [Suspect]
     Active Substance: SODIUM CHLORIDE
     Dosage: 1ST CYCLE, CYCLOPHOSPHAMIDE DILUTED WITH SODIUM CHLORIDE.
     Route: 041
  6. SODIUM CHLORIDE [Suspect]
     Active Substance: SODIUM CHLORIDE
     Dosage: 1ST CYCLE PACLITAXEL (ALBUMIN) DILUTED WITH SODIUM CHLORIDE
     Route: 041
  7. PACLITAXEL [Suspect]
     Active Substance: PACLITAXEL
     Indication: Breast cancer female
     Dosage: 1ST CYCLE PACLITAXEL (ALBUMIN) DILUTED WITH SODIUM CHLORIDE
     Route: 041
  8. PACLITAXEL [Suspect]
     Active Substance: PACLITAXEL
     Dosage: 2ND CYCLE PACLITAXEL (ALBUMIN) DILUTED WITH SODIUM CHLORIDE)
     Route: 041
     Dates: start: 20220504, end: 20220504
  9. GRANULOCYTE COLONY-STIMULATING FACTOR NOS [Concomitant]
     Active Substance: GRANULOCYTE COLONY-STIMULATING FACTOR NOS
     Indication: Prophylaxis
     Dosage: 200 UG, QD
     Route: 058

REACTIONS (2)
  - Myelosuppression [Recovered/Resolved]
  - Myelosuppression [Recovered/Resolved]

NARRATIVE: CASE EVENT DATE: 20220510
